FAERS Safety Report 18429358 (Version 1)
Quarter: 2020Q4

REPORT INFORMATION
  Report Type: Spontaneous
  Country: US (occurrence: US)
  Receive Date: 20201027
  Receipt Date: 20201027
  Transmission Date: 20210114
  Serious: Yes (Hospitalization, Other)
  Sender: FDA-Public Use
  Company Number: US-AMGEN-USASP2020170728

PATIENT
  Age: 84 Year
  Sex: Female

DRUGS (1)
  1. OTEZLA [Suspect]
     Active Substance: APREMILAST
     Indication: PSORIATIC ARTHROPATHY
     Dosage: 30 MILLIGRAM, BID
     Route: 048
     Dates: start: 20190606

REACTIONS (5)
  - Pneumonia [Recovered/Resolved]
  - Fall [Recovered/Resolved]
  - Rash [Recovered/Resolved]
  - Full blood count decreased [Recovered/Resolved]
  - Open fracture [Recovered/Resolved]

NARRATIVE: CASE EVENT DATE: 20200928
